FAERS Safety Report 9243632 (Version 3)
Quarter: 2014Q1

REPORT INFORMATION
  Report Type: Spontaneous
  Country: US (occurrence: US)
  Receive Date: 20130422
  Receipt Date: 20140218
  Transmission Date: 20141002
  Serious: Yes (Hospitalization, Other)
  Sender: FDA-Public Use
  Company Number: US-BIOGENIDEC-2013BI034651

PATIENT
  Age: 41 Year
  Sex: Female
  Weight: 89 kg

DRUGS (5)
  1. AVONEX [Suspect]
     Indication: MULTIPLE SCLEROSIS
     Route: 030
     Dates: start: 1996
  2. AVONEX [Suspect]
     Indication: MULTIPLE SCLEROSIS
     Route: 030
     Dates: start: 2003
  3. AVONEX [Suspect]
     Indication: MULTIPLE SCLEROSIS
     Route: 030
  4. VITAMIN B12 [Concomitant]
  5. VITAMIN D [Concomitant]

REACTIONS (27)
  - Colon cancer [Recovered/Resolved]
  - Electrocardiogram abnormal [Recovered/Resolved]
  - Palpitations [Recovered/Resolved]
  - Heart rate increased [Recovered/Resolved]
  - Gastrooesophageal reflux disease [Unknown]
  - Diabetes mellitus [Not Recovered/Not Resolved]
  - Gastric ulcer [Not Recovered/Not Resolved]
  - Injection site induration [Not Recovered/Not Resolved]
  - Weight decreased [Not Recovered/Not Resolved]
  - Injury associated with device [Unknown]
  - Sinusitis [Not Recovered/Not Resolved]
  - Injection site bruising [Not Recovered/Not Resolved]
  - Photosensitivity reaction [Unknown]
  - Multiple allergies [Unknown]
  - Vomiting projectile [Recovered/Resolved]
  - Body height decreased [Not Recovered/Not Resolved]
  - Neuropathy peripheral [Not Recovered/Not Resolved]
  - Glycosylated haemoglobin decreased [Not Recovered/Not Resolved]
  - Multiple sclerosis [Not Recovered/Not Resolved]
  - Cerebral arteriosclerosis [Not Recovered/Not Resolved]
  - Arterial occlusive disease [Unknown]
  - Cardiac procedure complication [Unknown]
  - Breast disorder [Unknown]
  - Influenza like illness [Recovered/Resolved]
  - Feeling hot [Recovered/Resolved]
  - Arthritis [Not Recovered/Not Resolved]
  - Muscle spasms [Not Recovered/Not Resolved]
